FAERS Safety Report 12617401 (Version 1)
Quarter: 2016Q3

REPORT INFORMATION
  Report Type: Spontaneous
  Country: US (occurrence: None)
  Receive Date: 20160802
  Receipt Date: 20160802
  Transmission Date: 20161109
  Serious: No
  Sender: FDA-Public Use
  Company Number: None

PATIENT
  Sex: Male

DRUGS (1)
  1. ORAPRED [Suspect]
     Active Substance: PREDNISOLONE SODIUM PHOSPHATE
     Dosage: LIQUID

REACTIONS (9)
  - Drug dispensing error [None]
  - Accidental overdose [None]
  - Constipation [None]
  - Middle insomnia [None]
  - Screaming [None]
  - Anxiety [None]
  - Restlessness [None]
  - Abdominal pain [None]
  - Nausea [None]

NARRATIVE: CASE EVENT DATE: 2016
